FAERS Safety Report 7747644-7 (Version None)
Quarter: 2011Q3

REPORT INFORMATION
  Report Type: 
  Country: None (occurrence: None)
  Receive Date: 20110913
  Receipt Date: 20110906
  Transmission Date: 20111222
  Serious: Yes (Hospitalization, Other)
  Sender: FDA-Public Use
  Company Number: US-US-EMD SERONO, INC.-7081637

PATIENT
  Sex: Female

DRUGS (2)
  1. REBIF [Suspect]
     Indication: MULTIPLE SCLEROSIS
     Route: 058
     Dates: start: 20030311
  2. INSULIN [Concomitant]
     Indication: DIABETES MELLITUS

REACTIONS (9)
  - VOMITING [None]
  - CYSTITIS [None]
  - TREMOR [None]
  - CEREBROVASCULAR ACCIDENT [None]
  - ROAD TRAFFIC ACCIDENT [None]
  - CHOLELITHIASIS [None]
  - ANKLE FRACTURE [None]
  - HEADACHE [None]
  - FATIGUE [None]
